FAERS Safety Report 12048572 (Version 1)
Quarter: 2016Q1

REPORT INFORMATION
  Report Type: Spontaneous
  Country: US (occurrence: US)
  Receive Date: 20160209
  Receipt Date: 20160209
  Transmission Date: 20160526
  Serious: Yes (Hospitalization)
  Sender: FDA-Public Use
  Company Number: US-CIPLA LTD.-2016US00892

PATIENT

DRUGS (3)
  1. CARBOPLATIN. [Suspect]
     Active Substance: CARBOPLATIN
     Indication: LARYNGEAL CANCER
     Dosage: AUC 6 MG/ML MIN ON DAY 1, EVERY 21 DAYS
     Route: 042
  2. AFATINIB [Suspect]
     Active Substance: AFATINIB
     Indication: LARYNGEAL CANCER
     Dosage: 30 MG, QD EVERY 21 DAYS
     Route: 048
  3. PACLITAXEL. [Suspect]
     Active Substance: PACLITAXEL
     Indication: LARYNGEAL CANCER
     Dosage: 175 MG/M2 ON DAY 1, EVERY 21 DAYS
     Route: 042

REACTIONS (8)
  - Asthenia [Unknown]
  - Sepsis [Unknown]
  - Diarrhoea [Unknown]
  - Abdominal pain [Unknown]
  - Tachycardia [Unknown]
  - Pancytopenia [Unknown]
  - Hypotension [Unknown]
  - Pneumonia [Unknown]
